FAERS Safety Report 19454322 (Version 1)
Quarter: 2021Q2

REPORT INFORMATION
  Report Type: Spontaneous
  Country: US (occurrence: US)
  Receive Date: 20210623
  Receipt Date: 20210623
  Transmission Date: 20210717
  Serious: No
  Sender: FDA-Public Use
  Company Number: US-HORIZON THERAPEUTICS-HZN-2021-000494

PATIENT
  Sex: Male

DRUGS (1)
  1. DUEXIS [Suspect]
     Active Substance: FAMOTIDINE\IBUPROFEN
     Indication: ARTHRITIS
     Route: 065

REACTIONS (6)
  - Drug ineffective [Unknown]
  - Sciatica [Unknown]
  - Feeling abnormal [Unknown]
  - Pain [Unknown]
  - Inflammation [Unknown]
  - Intervertebral disc protrusion [Unknown]
